FAERS Safety Report 25639234 (Version 1)
Quarter: 2025Q3

REPORT INFORMATION
  Report Type: Report from Study
  Country: GB (occurrence: GB)
  Receive Date: 20250804
  Receipt Date: 20250804
  Transmission Date: 20251020
  Serious: Yes (Other)
  Sender: AMGEN
  Company Number: GB-002147023-NVSC2025GB120154

PATIENT
  Age: 33 Year
  Sex: Female

DRUGS (1)
  1. AIMOVIG [Suspect]
     Active Substance: ERENUMAB-AOOE
     Indication: Migraine
     Dosage: 140 MG, Q4W (140MG PEN PK1)
     Route: 058
     Dates: start: 202407

REACTIONS (4)
  - Migraine [Unknown]
  - Loss of consciousness [Unknown]
  - Headache [Unknown]
  - Feeling abnormal [Unknown]
